FAERS Safety Report 5525484-7 (Version None)
Quarter: 2007Q4

REPORT INFORMATION
  Report Type: 
  Country: None (occurrence: None)
  Receive Date: 20071120
  Receipt Date: 20071109
  Transmission Date: 20080405
  Serious: Yes (Other)
  Sender: FDA-Public Use
  Company Number: CHPA2007US12164

PATIENT
  Age: 48 Year
  Sex: Male
  Weight: 113.4 kg

DRUGS (1)
  1. EXCEDRIN ES BACK + BODY (NCH) (ACETYLSALICYLIC ACID, ACETAMINOPHEN (PA [Suspect]
     Indication: BACK PAIN
     Dosage: 2 DF, ONCE A DAY, ORAL
     Route: 048
     Dates: start: 20071102, end: 20071109

REACTIONS (5)
  - ABDOMINAL DISTENSION [None]
  - BEDRIDDEN [None]
  - DIARRHOEA [None]
  - HEART RATE INCREASED [None]
  - MALAISE [None]
